FAERS Safety Report 19740143 (Version 1)
Quarter: 2021Q3

REPORT INFORMATION
  Report Type: Spontaneous
  Country: US (occurrence: US)
  Receive Date: 20210823
  Receipt Date: 20210823
  Transmission Date: 20211014
  Serious: No
  Sender: FDA-Public Use
  Company Number: US-BRISTOL-MYERS SQUIBB COMPANY-BMS-2021-083475

PATIENT
  Age: 65 Year
  Sex: Female

DRUGS (2)
  1. ORENCIA [Suspect]
     Active Substance: ABATACEPT
     Indication: ILLNESS
     Dosage: 125MG/ML QWK
     Route: 058
     Dates: start: 202102
  2. ORENCIA [Suspect]
     Active Substance: ABATACEPT
     Indication: ILLNESS
     Dosage: 125MG/ML QWK
     Route: 058
     Dates: start: 202102

REACTIONS (2)
  - Nasopharyngitis [Unknown]
  - Intentional product use issue [Unknown]
